FAERS Safety Report 15067858 (Version 1)
Quarter: 2018Q2

REPORT INFORMATION
  Report Type: Spontaneous
  Country: US (occurrence: US)
  Receive Date: 20180626
  Receipt Date: 20180626
  Transmission Date: 20180711
  Serious: No
  Sender: FDA-Public Use
  Company Number: US-BIOGEN-2018BI00525391

PATIENT
  Age: 29 Year
  Sex: Female

DRUGS (2)
  1. PLEGRIDY [Suspect]
     Active Substance: PEGINTERFERON BETA-1A
     Indication: MULTIPLE SCLEROSIS
     Route: 058
     Dates: start: 20180207
  2. PLEGRIDY [Suspect]
     Active Substance: PEGINTERFERON BETA-1A
     Route: 058

REACTIONS (7)
  - Bone contusion [Unknown]
  - Fall [Recovered/Resolved]
  - Contusion [Unknown]
  - Back pain [Recovered/Resolved]
  - Biliary colic [Recovered/Resolved]
  - Influenza [Not Recovered/Not Resolved]
  - Pulmonary contusion [Unknown]

NARRATIVE: CASE EVENT DATE: 201802
